FAERS Safety Report 12947057 (Version 2)
Quarter: 2016Q4

REPORT INFORMATION
  Report Type: Spontaneous
  Country: CN (occurrence: CN)
  Receive Date: 20161116
  Receipt Date: 20161124
  Transmission Date: 20170207
  Serious: Yes (Death)
  Sender: FDA-Public Use
  Company Number: CN-B.I. PHARMACEUTICALS,INC./RIDGEFIELD-2016-BI-077954

PATIENT

DRUGS (6)
  1. ASPIRIN. [Concomitant]
     Active Substance: ASPIRIN
     Dosage: AFTER THROMBOLYSIS
     Route: 048
  2. LOW MOLECULAR HEPARIN [Concomitant]
     Active Substance: UNSPECIFIED INGREDIENT
     Indication: ACUTE MYOCARDIAL INFARCTION
     Dosage: SUBCUTANEOUS INJECTION 5000U/10000U(THE FIRST 5 DAYS) THEN THE 6-7 DAYS CHANGE TO 5000U/DAY
     Route: 058
  3. ASPIRIN. [Concomitant]
     Active Substance: ASPIRIN
     Indication: ACUTE MYOCARDIAL INFARCTION
     Dosage: BEFORE THROMBOLYSIS
     Route: 048
  4. ACTILYSE [Suspect]
     Active Substance: ALTEPLASE
     Indication: ACUTE MYOCARDIAL INFARCTION
     Dosage: FIRST 15MG THROUGH INTRAVENOUS INJECTION IN 15 MINUTES, THEN 50MG THROUGH INTRAVENOUS DRIP IN 30 MIN
     Route: 042
  5. CLOPIDOGREL [Concomitant]
     Active Substance: CLOPIDOGREL BISULFATE
     Dosage: AFTER THROMBOLYSIS
     Route: 048
  6. CLOPIDOGREL [Concomitant]
     Active Substance: CLOPIDOGREL BISULFATE
     Indication: ACUTE MYOCARDIAL INFARCTION
     Dosage: BEFORE THROMBOLYSIS
     Route: 048

REACTIONS (1)
  - Haemorrhage [Fatal]
